FAERS Safety Report 13446591 (Version 2)
Quarter: 2017Q2

REPORT INFORMATION
  Report Type: Spontaneous
  Country: US (occurrence: US)
  Receive Date: 20170417
  Receipt Date: 20170418
  Transmission Date: 20170830
  Serious: Yes (Other)
  Sender: FDA-Public Use
  Company Number: US-DRREDDYS-USA/USA/17/0088667

PATIENT
  Sex: Female

DRUGS (2)
  1. EFFEXOR [Concomitant]
     Active Substance: VENLAFAXINE HYDROCHLORIDE
     Indication: PRODUCT USED FOR UNKNOWN INDICATION
     Route: 065
  2. ZENATANE [Suspect]
     Active Substance: ISOTRETINOIN
     Indication: ACNE
     Route: 065
     Dates: start: 20161216, end: 20170405

REACTIONS (5)
  - Anaemia [Unknown]
  - Serum ferritin decreased [Unknown]
  - Blood pressure increased [Unknown]
  - Bone marrow failure [Unknown]
  - Platelet count increased [Unknown]
